FAERS Safety Report 5154140-2 (Version None)
Quarter: 2006Q4

REPORT INFORMATION
  Report Type: 
  Country: None (occurrence: None)
  Receive Date: 20061120
  Receipt Date: 20050614
  Transmission Date: 20070319
  Serious: No
  Sender: FDA-Public Use
  Company Number: PA-AVENTIS-200620998GDDC

PATIENT
  Age: 31 Year
  Sex: Female

DRUGS (1)
  1. ARAVA [Suspect]
     Indication: RHEUMATOID ARTHRITIS
     Route: 048
     Dates: start: 20050201, end: 20050331

REACTIONS (1)
  - DRUG EXPOSURE DURING PREGNANCY [None]
